FAERS Safety Report 7094413-X (Version None)
Quarter: 2010Q4

REPORT INFORMATION
  Report Type: 
  Country: None (occurrence: None)
  Receive Date: 20101110
  Receipt Date: 20101105
  Transmission Date: 20110411
  Serious: Yes (Other)
  Sender: FDA-Public Use
  Company Number: BR-PFIZER INC-2010141258

PATIENT
  Age: 6 Year
  Sex: Male
  Weight: 40 kg

DRUGS (1)
  1. LYRICA [Suspect]
     Indication: HEADACHE
     Dosage: 150 MG, SINGLE
     Route: 048
     Dates: start: 20101104, end: 20101104

REACTIONS (2)
  - ACCIDENTAL DRUG INTAKE BY CHILD [None]
  - HYPERSOMNIA [None]
